FAERS Safety Report 18919531 (Version 1)
Quarter: 2021Q1

REPORT INFORMATION
  Report Type: Spontaneous
  Country: IN (occurrence: IN)
  Receive Date: 20210221
  Receipt Date: 20210221
  Transmission Date: 20210420
  Serious: No
  Sender: FDA-Public Use
  Company Number: IN-LUPIN PHARMACEUTICALS INC.-2021-01913

PATIENT
  Age: 23 Year
  Sex: Female
  Weight: 45 kg

DRUGS (5)
  1. CALCIUM [Suspect]
     Active Substance: CALCIUM
     Indication: OLIGOHYDRAMNIOS
     Dosage: UNK
     Route: 065
     Dates: start: 2019
  2. TETANUS TOXOID [Suspect]
     Active Substance: TETANUS TOXOIDS
     Indication: PRODUCT USED FOR UNKNOWN INDICATION
     Dosage: UNK
     Route: 065
     Dates: start: 2019
  3. AFI PLUS [Suspect]
     Active Substance: MINERALS\VITAMINS
     Indication: OLIGOHYDRAMNIOS
     Dosage: UNK
     Route: 065
     Dates: start: 2019
  4. L? ARGINITRATE [Suspect]
     Active Substance: AMINO ACIDS
     Indication: OLIGOHYDRAMNIOS
     Dosage: 5 GRAM, BID, SACHET
     Route: 048
     Dates: start: 2019
  5. IRON [Suspect]
     Active Substance: IRON
     Indication: OLIGOHYDRAMNIOS
     Dosage: UNK
     Route: 065
     Dates: start: 2019

REACTIONS (1)
  - Exposure during pregnancy [Unknown]

NARRATIVE: CASE EVENT DATE: 2019
